FAERS Safety Report 8134757-3 (Version None)
Quarter: 2012Q1

REPORT INFORMATION
  Report Type: 
  Country: None (occurrence: None)
  Receive Date: 20120209
  Receipt Date: 20120125
  Transmission Date: 20120608
  Serious: Yes (Other)
  Sender: FDA-Public Use
  Company Number: 1000027806

PATIENT
  Age: 18 Year
  Sex: Female

DRUGS (6)
  1. AERIUS (DESLORATADINE) (TABLETS) [Concomitant]
  2. RUBOZINC (ZINC GLUCONATE) [Concomitant]
  3. JASMINE (ETHINYLESTRADIOL, DROSPIRENONE) [Suspect]
     Indication: CONTRACEPTION
  4. ESCITALOPRAM [Suspect]
     Indication: MALAISE
     Dosage: 1 DOSAGE FORM (1 DOSAGE FORMS, 1 IN 1 D) ORAL
     Route: 048
     Dates: start: 20110929, end: 20111017
  5. NASONEX [Concomitant]
  6. ACETAMINOPHEN [Suspect]
     Indication: INFECTION
     Dates: start: 20110929, end: 20111017

REACTIONS (6)
  - MALAISE [None]
  - INAPPROPRIATE SCHEDULE OF DRUG ADMINISTRATION [None]
  - LIVER INJURY [None]
  - FATIGUE [None]
  - GASTROINTESTINAL DISORDER [None]
  - DRUG INTERACTION [None]
